FAERS Safety Report 13143953 (Version 1)
Quarter: 2017Q1

REPORT INFORMATION
  Report Type: Spontaneous
  Country: JP (occurrence: JP)
  Receive Date: 20170124
  Receipt Date: 20170124
  Transmission Date: 20170428
  Serious: Yes (Other)
  Sender: FDA-Public Use
  Company Number: JP-SA-2017SA010819

PATIENT
  Sex: Male

DRUGS (15)
  1. CALCIUM LEVOFOLINATE [Concomitant]
     Active Substance: LEVOLEUCOVORIN CALCIUM
     Route: 042
     Dates: start: 20160413, end: 20160413
  2. CALCIUM LEVOFOLINATE [Concomitant]
     Active Substance: LEVOLEUCOVORIN CALCIUM
     Route: 042
     Dates: start: 20161026, end: 20161026
  3. VECTIBIX [Concomitant]
     Active Substance: PANITUMUMAB
     Route: 042
     Dates: start: 20161026, end: 20161026
  4. 5-FU [Concomitant]
     Active Substance: FLUOROURACIL
     Route: 040
     Dates: start: 20160413, end: 20160413
  5. 5-FU [Concomitant]
     Active Substance: FLUOROURACIL
     Route: 040
     Dates: start: 20161026, end: 20161026
  6. 5-FU [Concomitant]
     Active Substance: FLUOROURACIL
     Route: 040
  7. 5-FU [Concomitant]
     Active Substance: FLUOROURACIL
     Route: 042
     Dates: start: 20161026, end: 20161026
  8. 5-FU [Concomitant]
     Active Substance: FLUOROURACIL
     Route: 042
  9. ELPLAT [Suspect]
     Active Substance: OXALIPLATIN
     Indication: COLON CANCER
     Route: 041
     Dates: start: 20161026, end: 20161026
  10. CALCIUM LEVOFOLINATE [Concomitant]
     Active Substance: LEVOLEUCOVORIN CALCIUM
     Route: 042
  11. 5-FU [Concomitant]
     Active Substance: FLUOROURACIL
     Route: 042
     Dates: start: 20160413, end: 20160413
  12. ELPLAT [Suspect]
     Active Substance: OXALIPLATIN
     Indication: COLON CANCER
     Route: 041
     Dates: start: 20160413, end: 20160413
  13. ELPLAT [Suspect]
     Active Substance: OXALIPLATIN
     Indication: COLON CANCER
     Route: 041
  14. VECTIBIX [Concomitant]
     Active Substance: PANITUMUMAB
     Route: 042
  15. VECTIBIX [Concomitant]
     Active Substance: PANITUMUMAB
     Route: 042
     Dates: start: 20160413, end: 20160413

REACTIONS (1)
  - Varices oesophageal [Not Recovered/Not Resolved]

NARRATIVE: CASE EVENT DATE: 20161004
